FAERS Safety Report 8595950 (Version 3)
Quarter: 2013Q4

REPORT INFORMATION
  Report Type: Spontaneous
  Country: US (occurrence: US)
  Receive Date: 20120605
  Receipt Date: 20131011
  Transmission Date: 20140711
  Serious: Yes (Other)
  Sender: FDA-Public Use
  Company Number: US-ASTRAZENECA-2012SE35541

PATIENT
  Sex: 0

DRUGS (11)
  1. NEXIUM [Suspect]
     Route: 048
     Dates: start: 20120106
  2. AMITRIPTYLINE HCL [Concomitant]
     Dates: start: 20120106
  3. TRAMADOL ACETAMINOPHEN [Concomitant]
     Dates: start: 20120106
  4. AMLODIPINE BESYLATE [Concomitant]
     Dates: start: 20120106
  5. PLAVIX [Concomitant]
     Dates: start: 20120106
  6. LISINOPRIL HCTZ [Concomitant]
     Dosage: 20-12.5 MG
     Dates: start: 20120106
  7. METOPROLOL TARTRATE [Concomitant]
     Dates: start: 20120106
  8. ZOLPIDEM TARTRATE [Concomitant]
     Dates: start: 20120106
  9. GABAPENTIN [Concomitant]
     Dates: start: 20120106
  10. ATORVASTATIN [Concomitant]
     Dates: start: 20120109
  11. RANEXA ER [Concomitant]
     Dates: start: 20120123

REACTIONS (8)
  - Cerebrovascular accident [Unknown]
  - Osteoporosis [Unknown]
  - Multiple fractures [Unknown]
  - Arthritis [Unknown]
  - Cataract [Unknown]
  - Depression [Unknown]
  - Diabetes mellitus [Unknown]
  - Glaucoma [Unknown]
